FAERS Safety Report 15372535 (Version 1)
Quarter: 2018Q3

REPORT INFORMATION
  Report Type: Spontaneous
  Country: JP (occurrence: JP)
  Receive Date: 20180911
  Receipt Date: 20180911
  Transmission Date: 20181010
  Serious: Yes (Other)
  Sender: FDA-Public Use
  Company Number: JP-ASTRAZENECA-2018SF15246

PATIENT
  Age: 90 Year
  Sex: Female

DRUGS (2)
  1. OMEPRAL [Suspect]
     Active Substance: OMEPRAZOLE
     Indication: ABDOMINAL DISCOMFORT
     Dosage: DOSE UNKNOWN
     Route: 048
  2. REBAMIPIDE [Concomitant]
     Active Substance: REBAMIPIDE
     Indication: ABDOMINAL DISCOMFORT
     Dosage: DOSE UNKNOWN
     Route: 048

REACTIONS (3)
  - Intestinal obstruction [Unknown]
  - Decreased appetite [Unknown]
  - Wrong technique in product usage process [Unknown]
